FAERS Safety Report 16986279 (Version 1)
Quarter: 2019Q4

REPORT INFORMATION
  Report Type: Report from Study
  Country: GB (occurrence: GB)
  Receive Date: 20191101
  Receipt Date: 20191101
  Transmission Date: 20200122
  Serious: Yes (Other)
  Sender: FDA-Public Use
  Company Number: GB-BAUSCH-BL-2019-059568

PATIENT
  Age: 62 Year
  Sex: Male

DRUGS (1)
  1. KYNTHEUM [Suspect]
     Active Substance: BRODALUMAB
     Indication: PSORIASIS
     Dosage: 210 MG WEEK 0, 1, 2 AND THEN EVERY 2 WEEKS
     Route: 058
     Dates: start: 20190219

REACTIONS (2)
  - Localised infection [Recovered/Resolved]
  - Corneal neovascularisation [Recovered/Resolved]

NARRATIVE: CASE EVENT DATE: 2019
